FAERS Safety Report 5802771-6 (Version None)
Quarter: 2008Q3

REPORT INFORMATION
  Report Type: 
  Country: None (occurrence: None)
  Receive Date: 20080708
  Receipt Date: 20080626
  Transmission Date: 20090109
  Serious: Yes (Other)
  Sender: FDA-Public Use
  Company Number: US-JNJFOC-20080206302

PATIENT
  Sex: Male
  Weight: 103.87 kg

DRUGS (13)
  1. REMICADE [Suspect]
     Indication: RHEUMATOID ARTHRITIS
     Route: 042
  2. CYCLOBENZAPRINE HCL [Concomitant]
  3. DIOVAN [Concomitant]
  4. ATENOLOL [Concomitant]
  5. LEVOXYL [Concomitant]
  6. NEXIUM [Concomitant]
  7. QUALAQUIN [Concomitant]
  8. INDOMETHACIN [Concomitant]
  9. AMLODIPINE [Concomitant]
  10. MIRAPEX [Concomitant]
  11. DARVOCET [Concomitant]
  12. PREDNISONE TAB [Concomitant]
  13. METHOTREXATE [Concomitant]

REACTIONS (4)
  - BURNING SENSATION [None]
  - HYPOAESTHESIA [None]
  - OSTEOARTHRITIS [None]
  - ROTATOR CUFF SYNDROME [None]
